FAERS Safety Report 21236520 (Version 1)
Quarter: 2022Q3

REPORT INFORMATION
  Report Type: Spontaneous
  Country: US (occurrence: US)
  Receive Date: 20220822
  Receipt Date: 20220822
  Transmission Date: 20221027
  Serious: No
  Sender: FDA-Public Use
  Company Number: US-Accord-264627

PATIENT
  Age: 72 Year
  Sex: Female
  Weight: 68.95 kg

DRUGS (8)
  1. ANASTROZOLE [Suspect]
     Active Substance: ANASTROZOLE
     Indication: Breast cancer
     Dosage: BY MOUTH DAILY FOR 5 YEARS
     Dates: start: 2017, end: 2022
  2. METFORMIN [Concomitant]
     Active Substance: METFORMIN HYDROCHLORIDE
  3. AMLODIPINE [Concomitant]
     Active Substance: AMLODIPINE BESYLATE
  4. LEVOTHYROXINE [Concomitant]
     Active Substance: LEVOTHYROXINE
  5. CLORAZEPATE DIPOTASSIUM [Concomitant]
     Active Substance: CLORAZEPATE DIPOTASSIUM
  6. CYCLOBENZAPRINE [Concomitant]
     Active Substance: CYCLOBENZAPRINE
  7. LOSARTAN [Concomitant]
     Active Substance: LOSARTAN
  8. PROPRANOLOL [Concomitant]
     Active Substance: PROPRANOLOL HYDROCHLORIDE

REACTIONS (8)
  - Hot flush [Unknown]
  - Arthralgia [Recovered/Resolved]
  - Bone density decreased [Unknown]
  - Dry mouth [Not Recovered/Not Resolved]
  - Angular cheilitis [Recovered/Resolved]
  - Gingival pain [Recovered/Resolved]
  - Lip swelling [Recovered/Resolved]
  - Blood glucose increased [Unknown]

NARRATIVE: CASE EVENT DATE: 20170101
